FAERS Safety Report 18980259 (Version 2)
Quarter: 2022Q1

REPORT INFORMATION
  Report Type: Report from Study
  Country: US (occurrence: US)
  Receive Date: 20210308
  Receipt Date: 20220228
  Transmission Date: 20220423
  Serious: No
  Sender: FDA-Public Use
  Company Number: US-HRARD-202000922

PATIENT
  Age: 49 Year
  Sex: Female

DRUGS (11)
  1. METOPIRONE [Suspect]
     Active Substance: METYRAPONE
     Dosage: 1 CAPSULE 5 TIMES PER DAY
     Route: 048
     Dates: start: 20200213
  2. METOPIRONE [Suspect]
     Active Substance: METYRAPONE
     Dosage: 1 CAPSULE 6 TIMES PER DAY
     Route: 048
     Dates: start: 202103
  3. FAMOTIDINE [Concomitant]
     Active Substance: FAMOTIDINE
  4. LORAZEPAM [Concomitant]
     Active Substance: LORAZEPAM
  5. OMEPRAZOLE [Concomitant]
     Active Substance: OMEPRAZOLE
  6. RIZATRIPTAN [Concomitant]
     Active Substance: RIZATRIPTAN
  7. SUMATRIPTAN [Concomitant]
     Active Substance: SUMATRIPTAN
  8. TYLENOL [Concomitant]
     Active Substance: ACETAMINOPHEN
  9. ZOLPIDEM [Concomitant]
     Active Substance: ZOLPIDEM TARTRATE
  10. Feverfew Leaves capsule [Concomitant]
  11. Multivitamin tablet [Concomitant]

REACTIONS (4)
  - Oral discomfort [Recovered/Resolved]
  - Product quality issue [Unknown]
  - Oral discomfort [Recovered/Resolved]
  - Product quality issue [Unknown]

NARRATIVE: CASE EVENT DATE: 20201124
